FAERS Safety Report 12169207 (Version 4)
Quarter: 2016Q2

REPORT INFORMATION
  Report Type: Report from Study
  Country: ES (occurrence: ES)
  Receive Date: 20160310
  Receipt Date: 20160420
  Transmission Date: 20160815
  Serious: Yes (Other)
  Sender: FDA-Public Use
  Company Number: ES-JNJFOC-20160304500

PATIENT

DRUGS (3)
  1. SOFOSBUVIR [Suspect]
     Active Substance: SOFOSBUVIR
     Indication: HEPATITIS C
     Route: 065
  2. RIBAVIRIN. [Suspect]
     Active Substance: RIBAVIRIN
     Indication: HEPATITIS C
     Route: 065
  3. SIMEPREVIR [Suspect]
     Active Substance: SIMEPREVIR
     Indication: HEPATITIS C
     Route: 065

REACTIONS (12)
  - Hyperbilirubinaemia [Unknown]
  - Off label use [Unknown]
  - Anaemia [Unknown]
  - Abdominal pain [Unknown]
  - Dry skin [Unknown]
  - Hepatic function abnormal [Unknown]
  - Product use issue [Unknown]
  - Virologic failure [Unknown]
  - Drug effect incomplete [Unknown]
  - Asthenia [Unknown]
  - Rash [Unknown]
  - Cough [Unknown]
